FAERS Safety Report 10230461 (Version 1)
Quarter: 2014Q2

REPORT INFORMATION
  Report Type: Spontaneous
  Country: US (occurrence: None)
  Receive Date: 20140610
  Receipt Date: 20140610
  Transmission Date: 20141212
  Serious: Yes (Other)
  Sender: FDA-Public Use
  Company Number: None

PATIENT
  Age: 49 Year
  Sex: Female

DRUGS (1)
  1. GENERIC CYMBALTA [Suspect]
     Route: 048
     Dates: start: 20140501, end: 20140527

REACTIONS (7)
  - Nausea [None]
  - Vomiting [None]
  - Nervousness [None]
  - Disturbance in attention [None]
  - Headache [None]
  - Vision blurred [None]
  - Dizziness [None]
